FAERS Safety Report 16287399 (Version 1)
Quarter: 2019Q2

REPORT INFORMATION
  Report Type: Report from Study
  Country: US (occurrence: US)
  Receive Date: 20190508
  Receipt Date: 20190508
  Transmission Date: 20190711
  Serious: Yes (Hospitalization)
  Sender: FDA-Public Use
  Company Number: US-ACTELION-A-US2019-189654

PATIENT
  Age: 70 Year
  Sex: Female
  Weight: 74.83 kg

DRUGS (3)
  1. UPTRAVI [Suspect]
     Active Substance: SELEXIPAG
     Indication: PULMONARY ARTERIAL HYPERTENSION
     Dosage: 1600 MCG, BID
     Route: 048
  2. ADEMPAS [Concomitant]
     Active Substance: RIOCIGUAT
  3. WARFARIN [Concomitant]
     Active Substance: WARFARIN

REACTIONS (6)
  - Mineral supplementation [Unknown]
  - Fatigue [Unknown]
  - Hypotension [Unknown]
  - Anaemia [Unknown]
  - Malaise [Unknown]
  - Transfusion [Unknown]

NARRATIVE: CASE EVENT DATE: 20190418
